FAERS Safety Report 12276325 (Version 3)
Quarter: 2016Q2

REPORT INFORMATION
  Report Type: Spontaneous
  Country: US (occurrence: US)
  Receive Date: 20160418
  Receipt Date: 20160511
  Transmission Date: 20160815
  Serious: Yes (Hospitalization)
  Sender: FDA-Public Use
  Company Number: US-JNJFOC-20160412343

PATIENT
  Age: 40 Year
  Sex: Female
  Weight: 113.4 kg

DRUGS (3)
  1. TRAMADOL. [Concomitant]
     Active Substance: TRAMADOL
     Dosage: ONE OR TWO TABLETS
     Route: 065
  2. LEVOTHYROXINE. [Concomitant]
     Active Substance: LEVOTHYROXINE
     Indication: HYPOTHYROIDISM
     Route: 048
  3. NECON 1/50 [Suspect]
     Active Substance: MESTRANOL\NORETHINDRONE
     Indication: MENSTRUATION IRREGULAR
     Dosage: ONE TABLET AT BED TIME ONLY
     Route: 048
     Dates: start: 201510, end: 20160330

REACTIONS (5)
  - Pulmonary hypertension [Not Recovered/Not Resolved]
  - Off label use [Unknown]
  - Pulmonary embolism [Recovering/Resolving]
  - Ejection fraction decreased [Not Recovered/Not Resolved]
  - Product use issue [Unknown]

NARRATIVE: CASE EVENT DATE: 201510
